FAERS Safety Report 12105880 (Version 2)
Quarter: 2016Q2

REPORT INFORMATION
  Report Type: Spontaneous
  Country: US (occurrence: US)
  Receive Date: 20160223
  Receipt Date: 20160412
  Transmission Date: 20160815
  Serious: Yes (Other)
  Sender: FDA-Public Use
  Company Number: US-BAYER-2016-034016

PATIENT
  Age: 24 Year
  Sex: Female
  Weight: 108.84 kg

DRUGS (1)
  1. MIRENA [Suspect]
     Active Substance: LEVONORGESTREL
     Indication: CONTRACEPTION
     Dosage: 20 MCG/24HR, CONT
     Route: 015
     Dates: start: 2012, end: 20160211

REACTIONS (4)
  - Pregnancy with contraceptive device [Not Recovered/Not Resolved]
  - Genital haemorrhage [None]
  - Device dislocation [None]
  - Drug ineffective [None]

NARRATIVE: CASE EVENT DATE: 20151228
